FAERS Safety Report 19463085 (Version 1)
Quarter: 2021Q2

REPORT INFORMATION
  Report Type: Spontaneous
  Country: US (occurrence: US)
  Receive Date: 20210625
  Receipt Date: 20210625
  Transmission Date: 20210717
  Serious: No
  Sender: FDA-Public Use
  Company Number: US-HORIZON THERAPEUTICS-HZN-2021-000986

PATIENT
  Sex: Female

DRUGS (1)
  1. VIMOVO [Suspect]
     Active Substance: ESOMEPRAZOLE MAGNESIUM\NAPROXEN
     Indication: OSTEOARTHRITIS
     Dosage: 500MG/20MG TAKE 1 TABLET 2 TIMES A DAY
     Route: 065

REACTIONS (2)
  - Pain [Unknown]
  - Fall [Unknown]
